FAERS Safety Report 8448464-0 (Version None)
Quarter: 2012Q2

REPORT INFORMATION
  Report Type: 
  Country: None (occurrence: None)
  Receive Date: 20120619
  Receipt Date: 20120604
  Transmission Date: 20120825
  Serious: Yes (Other)
  Sender: FDA-Public Use
  Company Number: US-ROCHE-1076377

PATIENT

DRUGS (6)
  1. GEMCITABINE HYDROCHLORIDE [Suspect]
  2. DOCETAXEL [Suspect]
     Dosage: PHASE II
  3. GEMCITABINE HYDROCHLORIDE [Suspect]
     Indication: SARCOMA
  4. AVASTIN [Suspect]
     Indication: SARCOMA
  5. GEMCITABINE HYDROCHLORIDE [Suspect]
     Dosage: PHASE II
  6. DOCETAXEL [Suspect]
     Indication: SARCOMA

REACTIONS (6)
  - PROTEINURIA [None]
  - WOUND DEHISCENCE [None]
  - RENAL FAILURE [None]
  - PNEUMOTHORAX [None]
  - PNEUMONIA NECROTISING [None]
  - FATIGUE [None]
